FAERS Safety Report 6245842-5 (Version None)
Quarter: 2009Q2

REPORT INFORMATION
  Report Type: 
  Country: None (occurrence: None)
  Receive Date: 20090626
  Receipt Date: 20090615
  Transmission Date: 20091009
  Serious: Yes (Hospitalization)
  Sender: FDA-Public Use
  Company Number: GB-RANBAXY-2009RR-24973

PATIENT
  Age: 78 Year
  Sex: Female

DRUGS (9)
  1. SIMVASTATIN [Suspect]
     Indication: HYPERLIPIDAEMIA
     Dosage: 40 MG, QD
     Route: 048
     Dates: start: 20090516
  2. SIMVASTATIN [Suspect]
     Dosage: 80 MG, QD
     Route: 048
  3. ALLOPURINOL [Concomitant]
     Dosage: 300 MG, QD
     Route: 065
  4. AMITRIPTYLINE HCL [Concomitant]
     Dosage: 25 MG, QD
     Route: 065
  5. AMLODIPINE [Concomitant]
     Dosage: 5 MG, QD
     Route: 065
  6. ASPIRIN [Concomitant]
     Dosage: 75 MG, QD
     Route: 065
  7. ATENOLOL [Concomitant]
     Dosage: 25 MG, QD
     Route: 065
  8. FRUSEMIDE [Concomitant]
     Dosage: 40 MG, QD
     Route: 065
  9. QUININE SULPHATE [Concomitant]
     Route: 065

REACTIONS (4)
  - MOBILITY DECREASED [None]
  - MUSCULOSKELETAL STIFFNESS [None]
  - MYALGIA [None]
  - RHABDOMYOLYSIS [None]
